FAERS Safety Report 6667608-4 (Version None)
Quarter: 2010Q2

REPORT INFORMATION
  Report Type: 
  Country: None (occurrence: None)
  Receive Date: 20100405
  Receipt Date: 20100326
  Transmission Date: 20101027
  Serious: Yes (Hospitalization)
  Sender: FDA-Public Use
  Company Number: GB-ELI_LILLY_AND_COMPANY-GB201001002152

PATIENT
  Age: 34 Year
  Sex: Female

DRUGS (1)
  1. CYMBALTA [Suspect]
     Indication: DEPRESSION
     Dosage: UNK, UNK
     Dates: start: 20070101

REACTIONS (3)
  - DYSPHAGIA [None]
  - PERITONSILLAR ABSCESS [None]
  - TONSILLITIS [None]
